FAERS Safety Report 7763375-1 (Version None)
Quarter: 2011Q3

REPORT INFORMATION
  Report Type: 
  Country: None (occurrence: None)
  Receive Date: 20110920
  Receipt Date: 20110912
  Transmission Date: 20111222
  Serious: Yes (Other)
  Sender: FDA-Public Use
  Company Number: US-BAYER-201041422NA

PATIENT
  Age: 37 Year
  Sex: Female
  Weight: 77.098 kg

DRUGS (7)
  1. YAZ [Suspect]
     Indication: ACNE
     Dosage: UNK
     Dates: start: 20020101, end: 20090101
  2. ACIPHEX [Concomitant]
     Indication: GASTRITIS
     Dosage: 20 MG, QD
     Route: 048
     Dates: start: 20081117
  3. NAPROXEN (ALEVE) [Concomitant]
  4. CIPROFLOXACIN [Concomitant]
     Indication: URINARY TRACT INFECTION
  5. ACETAMINOPHEN [Concomitant]
  6. SUDAFED 12 HOUR [Concomitant]
  7. YASMIN [Suspect]
     Indication: ACNE
     Dosage: UNK
     Dates: start: 20020101, end: 20090101

REACTIONS (5)
  - MUSCULOSKELETAL PAIN [None]
  - DISCOMFORT [None]
  - CHOLECYSTITIS CHRONIC [None]
  - GALLBLADDER DISORDER [None]
  - NAUSEA [None]
